FAERS Safety Report 5150438-2 (Version None)
Quarter: 2006Q4

REPORT INFORMATION
  Report Type: 
  Country: None (occurrence: None)
  Receive Date: 20061114
  Receipt Date: 20061106
  Transmission Date: 20070319
  Serious: Yes (Life-Threatening, Hospitalization)
  Sender: FDA-Public Use
  Company Number: JP-ROCHE-470086

PATIENT
  Age: 59 Year
  Sex: Male

DRUGS (5)
  1. PANALDINE [Suspect]
     Indication: THROMBOSIS PROPHYLAXIS
     Route: 048
     Dates: start: 20060922, end: 20061011
  2. ARTIST [Concomitant]
     Route: 048
     Dates: end: 20061012
  3. ANCARON [Concomitant]
     Route: 048
     Dates: end: 20061011
  4. ALDACTONE [Concomitant]
     Route: 048
  5. ALLOPURINOL [Concomitant]
     Dates: end: 20061012

REACTIONS (4)
  - AGRANULOCYTOSIS [None]
  - DRUG ERUPTION [None]
  - HYPERBILIRUBINAEMIA [None]
  - PYREXIA [None]
